FAERS Safety Report 11430423 (Version 1)
Quarter: 2015Q3

REPORT INFORMATION
  Report Type: Spontaneous
  Country: US (occurrence: US)
  Receive Date: 20150828
  Receipt Date: 20150828
  Transmission Date: 20151125
  Serious: No
  Sender: FDA-Public Use
  Company Number: US-ROCHE-1200793

PATIENT
  Sex: Female

DRUGS (5)
  1. RIBAVIRIN. [Suspect]
     Active Substance: RIBAVIRIN
     Indication: CHRONIC HEPATITIS C
     Dosage: ZYDUS BRAND; FREQUENCY: DAILY IN DIVIDED DOSES 400/600
     Route: 048
     Dates: start: 20121019, end: 20130125
  2. INCIVEK [Suspect]
     Active Substance: TELAPREVIR
     Indication: CHRONIC HEPATITIS C
     Route: 065
     Dates: start: 20121019, end: 20130111
  3. PEGASYS [Suspect]
     Active Substance: PEGINTERFERON ALFA-2A
     Indication: CHRONIC HEPATITIS C
     Route: 058
     Dates: start: 20121019
  4. RIBAVIRIN. [Suspect]
     Active Substance: RIBAVIRIN
     Dosage: FREQUENCY: DAILY IN DIVIDED DOSES 200/400
     Route: 065
     Dates: start: 20130215
  5. PROCRIT [Concomitant]
     Active Substance: ERYTHROPOIETIN
     Dosage: FOR 3 WEEKS
     Route: 065

REACTIONS (10)
  - Visual impairment [Recovered/Resolved]
  - Weight decreased [Unknown]
  - Weight increased [Unknown]
  - Vomiting [Recovered/Resolved]
  - Disturbance in attention [Recovered/Resolved]
  - Rash [Unknown]
  - Fatigue [Unknown]
  - Depression [Unknown]
  - Nausea [Recovered/Resolved]
  - Photophobia [Recovered/Resolved]
